FAERS Safety Report 9553311 (Version 1)
Quarter: 2013Q3

REPORT INFORMATION
  Report Type: Spontaneous
  Country: US (occurrence: None)
  Receive Date: 20130724
  Receipt Date: 20130724
  Transmission Date: 20140515
  Serious: Yes (Other)
  Sender: FDA-Public Use
  Company Number: PHEH2012US022558

PATIENT
  Age: 66 Year
  Sex: Female
  Weight: 73.4 kg

DRUGS (24)
  1. GLEEVEC (IMATINIB) UNKNOWN [Suspect]
     Indication: GASTROINTESTINAL STROMAL TUMOUR
     Route: 048
  2. CIPROFLOXACIN (CIPROFLOXACIN) [Concomitant]
  3. TURMERIC (CURCUMA LONGA RHIZOME) [Concomitant]
  4. COUMARIN (COUMARIN) [Concomitant]
  5. ZOFRAN (ONDANSETRON HYDROCHLORIDE) [Concomitant]
  6. DILAUDID (HYDROMORPHONE HYDROCHLORIDE) [Concomitant]
  7. CLONAZEPAM (CLONAZEPAM) [Concomitant]
  8. MULTI-VIT (VITAMINS NOS) [Concomitant]
  9. ALLOPURINOL (ALLOPURINOL) [Concomitant]
  10. ASTAXANTHIN (ASTAXANTHIN) [Concomitant]
  11. CALCIO /00944201/ (CALCIUM CARBONATE, COLECALCIFEROL) [Concomitant]
  12. CALMOSEPTINE /01864001/ (CALAMINE, ZINC OXIDE) [Concomitant]
  13. GABAPENTIN (GABAPENTIN) [Concomitant]
  14. KLONOPIN (CLONAZEPAM) [Concomitant]
  15. LASIX (FUROSEMIDE) [Concomitant]
  16. MAGNESIUM (MAGNESIUM) [Concomitant]
  17. TRIAMCINOLONE (TRIAMCINOLONE) [Concomitant]
  18. PHENERGAN ^AVENTIS PHARMA^ (PROMETHAZINE HYDROCHLORIDE) [Concomitant]
  19. POTASSIUM (POTASSIUM) [Concomitant]
  20. SELENIUM (SELENIUM) [Concomitant]
  21. VITAMIN B C COMPLEX (ASCORBIC ACID, NICOTINAMIDE, PYRIDOXINE HYDROCHLORIDE, RIBOFLAVIN SODIUM PHOSPHATE, THIAMINE HYDROCHLORIDE) [Concomitant]
  22. VITAMIN C [Concomitant]
  23. ZINC (ZINC) [Concomitant]
  24. ZOFRAN (ONDANSETRON HYDROCHLORIDE) [Concomitant]

REACTIONS (3)
  - Gastrointestinal stromal tumour [None]
  - Sinusitis [None]
  - Malignant neoplasm progression [None]
